FAERS Safety Report 9186615 (Version 2)
Quarter: 2013Q1

REPORT INFORMATION
  Report Type: Spontaneous
  Country: BR (occurrence: BR)
  Receive Date: 20130325
  Receipt Date: 20130325
  Transmission Date: 20140127
  Serious: Yes (Other)
  Sender: FDA-Public Use
  Company Number: BR-ASTRAZENECA-2011SE01516

PATIENT
  Age: 68 Year
  Sex: Female
  Weight: 73 kg

DRUGS (14)
  1. ATACAND [Suspect]
     Indication: HYPERTENSION
     Route: 048
     Dates: start: 201007
  2. ATACAND [Suspect]
     Indication: HYPERTENSION
     Route: 048
     Dates: start: 201101
  3. ATACAND [Suspect]
     Indication: HYPERTENSION
     Route: 048
  4. ATACAND [Suspect]
     Indication: HYPERTENSION
     Route: 048
     Dates: end: 201206
  5. ATACAND COMB [Suspect]
     Indication: HYPERTENSION
     Dosage: 16/5 MG
     Route: 048
  6. ATACAND COMB [Suspect]
     Indication: HYPERTENSION
     Dosage: 16/5 MG EVERY OTHER DAY
     Route: 048
     Dates: start: 201101
  7. ATACAND COMB [Suspect]
     Indication: HYPERTENSION
     Dosage: 16/5 MG ONCE DAILY, IN THE MORNING
     Route: 048
  8. ATACAND COMB [Suspect]
     Indication: HYPERTENSION
     Dosage: 16/2.5 MG, DAILY
     Route: 048
     Dates: end: 201206
  9. LIPITOR [Suspect]
     Indication: DYSLIPIDAEMIA
     Route: 048
     Dates: start: 201007, end: 201101
  10. INDAPEM [Suspect]
     Dosage: DAILY
     Route: 048
     Dates: start: 20101220
  11. ABLOK [Concomitant]
     Route: 048
     Dates: start: 201007
  12. ASA PEDIATRIC [Concomitant]
     Route: 048
     Dates: start: 2007
  13. GLIFAGE XR [Concomitant]
     Indication: DIABETES MELLITUS
     Route: 048
     Dates: start: 2007
  14. THYIAZINIC DIURETIC [Concomitant]

REACTIONS (7)
  - Blood pressure increased [Recovered/Resolved]
  - Blood pressure fluctuation [Recovered/Resolved]
  - Blood creatine phosphokinase increased [Recovered/Resolved]
  - Myalgia [Recovered/Resolved]
  - Hypotension [Recovered/Resolved]
  - Off label use [Recovered/Resolved]
  - Drug ineffective [Unknown]
